FAERS Safety Report 9477484 (Version 2)
Quarter: 2013Q3

REPORT INFORMATION
  Report Type: Report from Study
  Country: CA (occurrence: CA)
  Receive Date: 20130827
  Receipt Date: 20130918
  Transmission Date: 20140515
  Serious: Yes (Other)
  Sender: FDA-Public Use
  Company Number: CA-ROCHE-1266188

PATIENT
  Sex: Female

DRUGS (2)
  1. PEGASYS [Suspect]
     Indication: CHRONIC HEPATITIS C
     Dosage: 0.5 ML SYRINGE
     Route: 058
     Dates: start: 20121206
  2. COPEGUS [Suspect]
     Indication: CHRONIC HEPATITIS C
     Dosage: 42 TABLETS A WEEK
     Route: 048
     Dates: start: 20130612

REACTIONS (3)
  - Nausea [Unknown]
  - Diarrhoea [Unknown]
  - Respiratory depression [Unknown]
